FAERS Safety Report 16874224 (Version 2)
Quarter: 2020Q3

REPORT INFORMATION
  Report Type: Report from Study
  Country: BE (occurrence: BE)
  Receive Date: 20191001
  Receipt Date: 20191025
  Transmission Date: 20201104
  Serious: No
  Sender: FDA-Public Use
  Company Number: PHHO2019BE009682

PATIENT
  Age: 79 Year
  Sex: Male
  Weight: 59 kg

DRUGS (9)
  1. METFORMINE HCL [Suspect]
     Active Substance: METFORMIN HYDROCHLORIDE
     Dosage: UNK
     Route: 065
  2. BLINDED AL?86810 6 MG IN 50 ?L 120 MG/ML [Suspect]
     Active Substance: BROLUCIZUMAB
     Indication: DIABETIC RETINAL OEDEMA
     Dosage: CODE NOT BROKEN
     Route: 031
     Dates: start: 20181214
  3. ASAFLOW [Concomitant]
     Active Substance: ASPIRIN
     Indication: PROPHYLAXIS
     Dosage: 20 MG, QD
     Route: 065
     Dates: start: 2011
  4. BLINDED NO TREATMENT RECEIVED [Suspect]
     Active Substance: INVESTIGATIONAL PRODUCT
     Indication: DIABETIC RETINAL OEDEMA
     Dosage: CODE NOT BROKEN
     Route: 031
     Dates: start: 20181214
  5. METFORMINE HCL [Suspect]
     Active Substance: METFORMIN HYDROCHLORIDE
     Indication: PRODUCT USED FOR UNKNOWN INDICATION
     Dosage: 850 MG, UNK
     Route: 065
     Dates: start: 2002, end: 20190905
  6. COVERAM [Concomitant]
     Active Substance: AMLODIPINE\PERINDOPRIL
     Indication: HYPERTENSION
     Dosage: UNK
     Route: 065
     Dates: start: 20120907
  7. EYLEA [Suspect]
     Active Substance: AFLIBERCEPT
     Indication: DIABETIC RETINAL OEDEMA
     Dosage: CODE NOT BROKEN
     Route: 031
     Dates: start: 20181214
  8. ATORVASTATIN [Suspect]
     Active Substance: ATORVASTATIN
     Indication: PRODUCT USED FOR UNKNOWN INDICATION
     Dosage: 10 MG, QD
     Route: 065
     Dates: start: 20180614, end: 20190905
  9. BLINDED AL?86810 6 MG IN 50 ?L 120 MG/ML [Suspect]
     Active Substance: BROLUCIZUMAB
     Indication: DIABETIC RETINAL OEDEMA
     Dosage: CODE NOT BROKEN
     Route: 031
     Dates: start: 20181214

REACTIONS (3)
  - Muscle strain [Recovered/Resolved]
  - Weight decreased [Recovered/Resolved]
  - Asthenia [Recovered/Resolved]

NARRATIVE: CASE EVENT DATE: 20190830
